FAERS Safety Report 9935247 (Version 1)
Quarter: 2014Q1

REPORT INFORMATION
  Report Type: Spontaneous
  Country: FR (occurrence: FR)
  Receive Date: 20140228
  Receipt Date: 20140228
  Transmission Date: 20141002
  Serious: Yes (Other)
  Sender: FDA-Public Use
  Company Number: FR-UCBSA-113241

PATIENT
  Age: 40 Year
  Sex: Male

DRUGS (2)
  1. VIMPAT [Suspect]
  2. KEPPRA [Concomitant]

REACTIONS (1)
  - Encephalopathy [Unknown]
